FAERS Safety Report 20647852 (Version 2)
Quarter: 2022Q1

REPORT INFORMATION
  Report Type: Spontaneous
  Country: DK (occurrence: DK)
  Receive Date: 20220329
  Receipt Date: 20220330
  Transmission Date: 20220423
  Serious: Yes (Other)
  Sender: FDA-Public Use
  Company Number: None

PATIENT
  Age: 25 Year
  Sex: Female

DRUGS (4)
  1. PEGFILGRASTIM [Suspect]
     Active Substance: PEGFILGRASTIM
     Indication: T-cell type acute leukaemia
     Dosage: 6 MILLIGRAM, Q3W; RECEIVED ON DAY 7 EVERY 3 WEEKS FOR 2 COURSES
     Route: 058
  2. DARATUMUMAB [Suspect]
     Active Substance: DARATUMUMAB
     Indication: T-cell type acute leukaemia
     Dosage: 16 MILLIGRAM/KILOGRAM, Q2W; RECEIVED WEEKLY ON DAY 1 FOR 8 WEEKS...
     Route: 042
  3. NELARABINE [Suspect]
     Active Substance: NELARABINE
     Indication: T-cell type acute leukaemia
     Dosage: 1500 MILLIGRAM/SQ. METER; RECEIVED ON DAYS 1, 3 AND 5 EVERY 3 WEEKS FOR 2 COURSES
     Route: 065
  4. DEXAMETHASONE [Suspect]
     Active Substance: DEXAMETHASONE
     Indication: T-cell type acute leukaemia
     Dosage: 40 MILLIGRAM; RECEIVED ON DAYS 1-4 EVERY 2 WEEKS FOR 2 COURSES
     Route: 065

REACTIONS (9)
  - Thrombocytopenia [Recovering/Resolving]
  - Acute graft versus host disease in liver [Not Recovered/Not Resolved]
  - Acute graft versus host disease in intestine [Not Recovered/Not Resolved]
  - Bacteraemia [Unknown]
  - Sepsis [Unknown]
  - Myelosuppression [Recovering/Resolving]
  - Peripheral sensory neuropathy [Unknown]
  - Fatigue [Unknown]
  - Myalgia [Unknown]
